FAERS Safety Report 21326250 (Version 2)
Quarter: 2022Q3

REPORT INFORMATION
  Report Type: Spontaneous
  Country: GB (occurrence: GB)
  Receive Date: 20220913
  Receipt Date: 20220922
  Transmission Date: 20221026
  Serious: Yes (Hospitalization, Other)
  Sender: FDA-Public Use
  Company Number: GB-Eisai Medical Research-EC-2020-083202

PATIENT

DRUGS (10)
  1. ZONISAMIDE [Suspect]
     Active Substance: ZONISAMIDE
     Indication: Epilepsy
     Dosage: 100 MG, BID
     Route: 048
     Dates: start: 201912, end: 20200127
  2. ZONISAMIDE [Suspect]
     Active Substance: ZONISAMIDE
     Dosage: 150 MG, BID (INCREASE)
     Route: 048
     Dates: start: 20200108
  3. VALPROATE SODIUM [Concomitant]
     Active Substance: VALPROATE SODIUM
     Indication: Epilepsy
     Dosage: 600 MG 12 HOUR, BID
     Route: 048
     Dates: start: 201908, end: 2020
  4. VALPROATE SODIUM [Concomitant]
     Active Substance: VALPROATE SODIUM
     Dosage: UNK (LOWER DOSE)
     Route: 048
     Dates: start: 202002
  5. LEVETIRACETAM [Concomitant]
     Active Substance: LEVETIRACETAM
     Indication: Epilepsy
     Dosage: 900 MG, BID
     Route: 048
     Dates: start: 201905, end: 2020
  6. LEVETIRACETAM [Concomitant]
     Active Substance: LEVETIRACETAM
     Dosage: UNK
     Route: 048
     Dates: start: 202002
  7. CLOBAZAM [Concomitant]
     Active Substance: CLOBAZAM
     Indication: Epilepsy
     Dosage: 10 MG, QD (10 MG IN THE MORNING AND 15 MG IN THE EVENING)
     Route: 048
     Dates: start: 2017
  8. CLOBAZAM [Concomitant]
     Active Substance: CLOBAZAM
     Dosage: 15 MG, QD (10 MG IN THE MORNING AND 15 MG IN THE EVENING)
     Route: 048
     Dates: end: 2020
  9. CLOBAZAM [Concomitant]
     Active Substance: CLOBAZAM
     Dosage: UNK (INCREASE DOSE)
     Route: 048
     Dates: start: 2020, end: 202002
  10. CLOBAZAM [Concomitant]
     Active Substance: CLOBAZAM
     Dosage: UNK
     Route: 048
     Dates: start: 202002

REACTIONS (1)
  - Drug reaction with eosinophilia and systemic symptoms [Recovered/Resolved]

NARRATIVE: CASE EVENT DATE: 20200101
